FAERS Safety Report 6817676-1 (Version None)
Quarter: 2010Q3

REPORT INFORMATION
  Report Type: 
  Country: None (occurrence: None)
  Receive Date: 20100706
  Receipt Date: 20100630
  Transmission Date: 20110219
  Serious: Yes (Other)
  Sender: FDA-Public Use
  Company Number: US-PFIZER INC-2010082977

PATIENT
  Sex: Female
  Weight: 58.957 kg

DRUGS (5)
  1. AROMASIN [Suspect]
     Indication: BREAST CANCER
     Dosage: 25 MG, 1X/DAY
     Route: 048
     Dates: start: 20090801
  2. SIMVASTATIN [Concomitant]
     Indication: BLOOD CHOLESTEROL INCREASED
  3. VITAMINS [Concomitant]
  4. FISH OIL [Concomitant]
  5. CALCIUM CARBONATE [Concomitant]

REACTIONS (2)
  - COGNITIVE DISORDER [None]
  - WEIGHT INCREASED [None]
